FAERS Safety Report 4948721-6 (Version None)
Quarter: 2006Q1

REPORT INFORMATION
  Report Type: 
  Country: None (occurrence: None)
  Receive Date: 20060314
  Receipt Date: 20060215
  Transmission Date: 20060701
  Serious: Yes (Death)
  Sender: FDA-Public Use
  Company Number: 6020620

PATIENT
  Age: 87 Year
  Sex: Male

DRUGS (12)
  1. BISOPROLOL FUMARATE [Suspect]
     Indication: CARDIAC FAILURE
     Dosage: 1,2500 MG (1,25 MG, 1 IN 1 D) ORAL
     Route: 048
  2. DIGOXIN [Suspect]
     Indication: ATRIAL FIBRILLATION
     Dosage: 1 DOSAGE FORMS (1 DOSAGE FORMS, 1 IN 1 D) ORAL
     Route: 048
  3. DIGOXIN [Suspect]
     Indication: ATRIAL FLUTTER
     Dosage: 1 DOSAGE FORMS (1 DOSAGE FORMS, 1 IN 1 D) ORAL
     Route: 048
  4. BACTRIM [Suspect]
     Indication: URINARY TRACT INFECTION
     Dosage: 2 DOSAGE FORMS (2 DOSAGE FORMS, 1 D) ORAL
     Route: 048
     Dates: start: 20060111
  5. POTASSIUM CHLORIDE [Suspect]
     Dosage: 600,0000 MG (600 MG, 1 IN 1 D) ORAL
     Route: 048
  6. RAMIPRIL [Suspect]
     Indication: CARDIAC FAILURE
     Dosage: 2,500 MG (2,5 MG, 1 IN 1 D) ORAL
     Route: 048
  7. PREVISCAN (20 MG, TABLET) (FLUINDIONE) [Concomitant]
  8. FUROSEMIDE (40 MG)(FUROSEMIDE) [Concomitant]
  9. NEOMERCAZOLE 20 MG) [Concomitant]
  10. CYNOMEL (25 MICROGRAM) (LIOTHYRONINE SODIUM) [Concomitant]
  11. OXYBUTININE [Concomitant]
  12. SPASFON (PHLOROGLUCINOL, TRIMETHYLPHLOROGLUCINOL) [Concomitant]

REACTIONS (7)
  - ANAEMIA [None]
  - CARDIAC ARREST [None]
  - GASTROINTESTINAL HAEMORRHAGE [None]
  - HYPERKALAEMIA [None]
  - RENAL FAILURE ACUTE [None]
  - SYNCOPE [None]
  - VENTRICULAR FIBRILLATION [None]
